FAERS Safety Report 26110289 (Version 1)
Quarter: 2025Q4

REPORT INFORMATION
  Report Type: Spontaneous
  Country: JP (occurrence: JP)
  Receive Date: 20251202
  Receipt Date: 20251202
  Transmission Date: 20260117
  Serious: Yes (Hospitalization, Other)
  Sender: AJANTA PHARMA USA INC
  Company Number: JP-AJANTA-2025AJA00160

PATIENT
  Age: 15 Year
  Sex: Female

DRUGS (3)
  1. GUANFACINE [Suspect]
     Active Substance: GUANFACINE
     Indication: Attention deficit hyperactivity disorder
     Dosage: EXTENDED-RELEASE
  2. GUANFACINE [Suspect]
     Active Substance: GUANFACINE
     Indication: Autism spectrum disorder
     Dosage: EXTENDED-RELEASE
  3. GUANFACINE [Suspect]
     Active Substance: GUANFACINE
     Dosage: EXTENDED-RELEASE

REACTIONS (4)
  - Stress cardiomyopathy [Recovering/Resolving]
  - Electrocardiogram QT prolonged [Recovering/Resolving]
  - Acute respiratory failure [Recovering/Resolving]
  - Intentional overdose [Unknown]
